FAERS Safety Report 9143587 (Version 1)
Quarter: 2013Q1

REPORT INFORMATION
  Report Type: Spontaneous
  Country: GB (occurrence: GB)
  Receive Date: 20130306
  Receipt Date: 20130306
  Transmission Date: 20140127
  Serious: Yes (Life-Threatening)
  Sender: FDA-Public Use
  Company Number: GB-ROCHE-1198361

PATIENT
  Sex: 0

DRUGS (12)
  1. MIRCERA [Suspect]
     Indication: NEPHROGENIC ANAEMIA
     Route: 042
     Dates: start: 20120221, end: 20120221
  2. ACARBOSE [Concomitant]
  3. ALFACALCIDOL [Concomitant]
  4. AMLODIPINE [Concomitant]
  5. BUMETANIDE [Concomitant]
  6. CANDESARTAN [Concomitant]
  7. DOXAZOSIN [Concomitant]
  8. GLICLAZIDE [Concomitant]
  9. HYDRALAZINE [Concomitant]
  10. LANTUS [Concomitant]
  11. METOLAZONE [Concomitant]
  12. NEBIVOLOL [Concomitant]

REACTIONS (2)
  - Cardiac arrest [Unknown]
  - Syncope [Unknown]
